FAERS Safety Report 21125847 (Version 1)
Quarter: 2022Q3

REPORT INFORMATION
  Report Type: Spontaneous
  Country: US (occurrence: US)
  Receive Date: 20220725
  Receipt Date: 20220725
  Transmission Date: 20221027
  Serious: No
  Sender: FDA-Public Use
  Company Number: US-ABBVIE-22K-163-4429314-00

PATIENT
  Sex: Female

DRUGS (1)
  1. ORILISSA [Suspect]
     Active Substance: ELAGOLIX SODIUM
     Indication: Endometriosis
     Route: 048
     Dates: start: 20220530

REACTIONS (5)
  - Heavy menstrual bleeding [Unknown]
  - Thrombosis [Unknown]
  - Secretion discharge [Unknown]
  - COVID-19 [Unknown]
  - Back pain [Unknown]

NARRATIVE: CASE EVENT DATE: 20220501
